FAERS Safety Report 5636665-6 (Version None)
Quarter: 2008Q1

REPORT INFORMATION
  Report Type: 
  Country: None (occurrence: None)
  Receive Date: 20080219
  Receipt Date: 20080219
  Transmission Date: 20080703
  Serious: No
  Sender: FDA-Public Use
  Company Number: None

PATIENT
  Age: 69 Year
  Sex: Male

DRUGS (1)
  1. PIROXICAM [Suspect]
     Indication: PAIN
     Dosage: 20MG HS PO
     Route: 048
     Dates: start: 20070717, end: 20070815

REACTIONS (1)
  - BARRETT'S OESOPHAGUS [None]
